FAERS Safety Report 24026276 (Version 4)
Quarter: 2024Q3

REPORT INFORMATION
  Report Type: Spontaneous
  Country: MX (occurrence: MX)
  Receive Date: 20240628
  Receipt Date: 20240913
  Transmission Date: 20241017
  Serious: No
  Sender: AMGEN
  Company Number: MX-AMGEN-MEXSP2024124474

PATIENT
  Age: 67 Year
  Sex: Female

DRUGS (5)
  1. NEULASTA [Suspect]
     Active Substance: PEGFILGRASTIM
     Indication: Neutropenia
     Dosage: UNK, EVERY 28 DAYS
     Route: 065
  2. NEULASTA [Suspect]
     Active Substance: PEGFILGRASTIM
     Dosage: UNK, EVERY 28 DAYS
     Route: 065
  3. NEULASTA [Suspect]
     Active Substance: PEGFILGRASTIM
     Dosage: UNK, EVERY 28 DAYS
     Route: 065
  4. NEULASTA [Suspect]
     Active Substance: PEGFILGRASTIM
     Dosage: UNK, EVERY 28 DAYS
     Route: 065
  5. NEULASTA [Suspect]
     Active Substance: PEGFILGRASTIM
     Dosage: UNK, EVERY 28 DAYS
     Route: 065

REACTIONS (2)
  - Product preparation error [Unknown]
  - Drug dose omission by device [Unknown]

NARRATIVE: CASE EVENT DATE: 20240620
